FAERS Safety Report 5001681-4 (Version None)
Quarter: 2006Q2

REPORT INFORMATION
  Report Type: 
  Country: None (occurrence: None)
  Receive Date: 20060515
  Receipt Date: 20060503
  Transmission Date: 20061013
  Serious: Yes (Other)
  Sender: FDA-Public Use
  Company Number: US-BRISTOL-MYERS SQUIBB COMPANY-13365515

PATIENT
  Age: 39 Year
  Sex: Female
  Weight: 55 kg

DRUGS (10)
  1. REYATAZ [Suspect]
     Dosage: THERAPY 18-JAN-2006 TO 01-FEB-2006, RESTARTED ON 19-FEB-2006 AT 300 MG DAILY.
     Dates: start: 20060118
  2. RITONAVIR [Concomitant]
     Dates: start: 20060219
  3. TRUVADA [Concomitant]
     Dosage: DOSAGE FORM-1 TABLET
  4. PENTAMIDINE AEROSOL [Concomitant]
     Route: 055
  5. NEUPOGEN [Concomitant]
     Route: 058
  6. DARBEPOETIN ALFA [Concomitant]
     Route: 058
  7. FLUCONAZOLE [Concomitant]
  8. METOPROLOL TARTRATE [Concomitant]
  9. LISINOPRIL [Concomitant]
  10. AMBIEN [Concomitant]

REACTIONS (3)
  - DRUG INEFFECTIVE [None]
  - DYSPHAGIA [None]
  - RENAL FAILURE [None]
